FAERS Safety Report 8431445-0 (Version None)
Quarter: 2012Q2

REPORT INFORMATION
  Report Type: 
  Country: None (occurrence: None)
  Receive Date: 20120613
  Receipt Date: 20120604
  Transmission Date: 20120825
  Serious: Yes (Hospitalization, Other)
  Sender: FDA-Public Use
  Company Number: US-BAYER-201036656NA

PATIENT
  Age: 23 Year
  Sex: Female
  Weight: 115.65 kg

DRUGS (8)
  1. CYCLOBENZAPRINE [Concomitant]
     Dosage: 10 MG, UNK
     Dates: start: 20060322
  2. PERCOCET [Concomitant]
     Indication: PAIN
  3. CIPROFLOXACIN [Concomitant]
     Dosage: 500 MG, UNK
     Route: 048
  4. YASMIN [Suspect]
     Route: 048
     Dates: start: 20030601, end: 20060301
  5. SYNTHROID [Concomitant]
     Dosage: 0.075 MG, QD
  6. PREDNISONE [Concomitant]
     Dosage: 20 MG, UNK
     Route: 048
     Dates: start: 20060322
  7. COLACE [Concomitant]
  8. NU-IRON [Concomitant]

REACTIONS (20)
  - DEEP VEIN THROMBOSIS [None]
  - FEAR OF PREGNANCY [None]
  - PERIPHERAL VASCULAR DISORDER [None]
  - ACTIVITIES OF DAILY LIVING IMPAIRED [None]
  - MENORRHAGIA [None]
  - THROMBOSIS [None]
  - EMOTIONAL DISORDER [None]
  - INTERNATIONAL NORMALISED RATIO INCREASED [None]
  - HAEMOGLOBIN DECREASED [None]
  - HAEMATOCRIT DECREASED [None]
  - FOREIGN BODY [None]
  - TREATMENT NONCOMPLIANCE [None]
  - MENTAL DISORDER [None]
  - NERVE COMPRESSION [None]
  - DECREASED ACTIVITY [None]
  - WEIGHT INCREASED [None]
  - FALL [None]
  - BACK PAIN [None]
  - MENSTRUAL DISORDER [None]
  - PELVIC VENOUS THROMBOSIS [None]
